FAERS Safety Report 9008929 (Version 3)
Quarter: 2013Q1

REPORT INFORMATION
  Report Type: Spontaneous
  Country: US (occurrence: US)
  Receive Date: 20130111
  Receipt Date: 20130322
  Transmission Date: 20140127
  Serious: Yes (Death, Other)
  Sender: FDA-Public Use
  Company Number: US-PFIZER INC-2013005642

PATIENT
  Age: 19 Year
  Sex: Female

DRUGS (3)
  1. ALPRAZOLAM [Suspect]
     Dosage: 3 MG, 2X/DAY
     Route: 048
  2. ALPRAZOLAM [Suspect]
     Dosage: 20-30 TABLETS OF ALPRAZOLAM 1 MG
  3. FLUOXETINE [Suspect]
     Dosage: 40 MG, 1X/DAY
     Route: 048

REACTIONS (6)
  - Intentional overdose [Fatal]
  - Completed suicide [Fatal]
  - Cardiac arrest [Fatal]
  - Respiratory arrest [Fatal]
  - Hypoxic-ischaemic encephalopathy [Fatal]
  - Toxicity to various agents [Fatal]
